FAERS Safety Report 10227075 (Version 3)
Quarter: 2014Q4

REPORT INFORMATION
  Report Type: Spontaneous
  Country: US (occurrence: None)
  Receive Date: 20140606
  Receipt Date: 20141021
  Transmission Date: 20150528
  Serious: Yes (Hospitalization)
  Sender: FDA-Public Use
  Company Number: UNT-2014-001297

PATIENT
  Age: 50 Year
  Sex: Female
  Weight: 67.1 kg

DRUGS (4)
  1. REMODULIN [Suspect]
     Active Substance: TREPROSTINIL
     Indication: PULMONARY ARTERIAL HYPERTENSION
  2. TYVASO [Suspect]
     Active Substance: TREPROSTINIL
     Indication: PULMONARY ARTERIAL HYPERTENSION
     Route: 055
     Dates: start: 20100527
  3. ADCIRCA [Concomitant]
     Active Substance: TADALAFIL
  4. OPSUMIT (MACITENTAN) [Concomitant]

REACTIONS (4)
  - Loss of consciousness [None]
  - Device issue [None]
  - Hypotension [None]
  - Drug dose omission [None]

NARRATIVE: CASE EVENT DATE: 20140514
